FAERS Safety Report 6726354-9 (Version None)
Quarter: 2010Q2

REPORT INFORMATION
  Report Type: 
  Country: None (occurrence: None)
  Receive Date: 20100514
  Receipt Date: 20100505
  Transmission Date: 20101027
  Serious: Yes (Other)
  Sender: FDA-Public Use
  Company Number: A0850090A

PATIENT
  Sex: Female

DRUGS (3)
  1. PAXIL [Suspect]
     Indication: OBSESSIVE-COMPULSIVE DISORDER
     Dosage: 40MG PER DAY
     Route: 048
  2. TYLENOL COLD ES [Suspect]
     Route: 065
     Dates: start: 20100209, end: 20100211
  3. MICRONOR [Concomitant]
     Indication: CONTRACEPTION
     Route: 065

REACTIONS (11)
  - ABNORMAL BEHAVIOUR [None]
  - ADVERSE DRUG REACTION [None]
  - AGGRESSION [None]
  - DRUG INTERACTION [None]
  - FEELING ABNORMAL [None]
  - GRIMACING [None]
  - HEART RATE INCREASED [None]
  - INTENTIONAL SELF-INJURY [None]
  - SEROTONIN SYNDROME [None]
  - TREMOR [None]
  - VIOLENCE-RELATED SYMPTOM [None]
